FAERS Safety Report 15805943 (Version 4)
Quarter: 2019Q4

REPORT INFORMATION
  Report Type: Spontaneous
  Country: CA (occurrence: CA)
  Receive Date: 20190110
  Receipt Date: 20191001
  Transmission Date: 20200122
  Serious: Yes (Other)
  Sender: FDA-Public Use
  Company Number: CA-ORION CORPORATION ORION PHARMA-TREX2019-0037

PATIENT
  Age: 61 Year
  Sex: Female

DRUGS (5)
  1. METHOTREXATE (TRADE NAME UNKNOWN) [Suspect]
     Active Substance: METHOTREXATE
     Indication: PRODUCT USED FOR UNKNOWN INDICATION
     Route: 065
  2. XELJANZ XR [Suspect]
     Active Substance: TOFACITINIB CITRATE
     Route: 048
     Dates: start: 201901
  3. XELJANZ XR [Suspect]
     Active Substance: TOFACITINIB CITRATE
     Indication: RHEUMATOID ARTHRITIS
     Route: 048
     Dates: start: 20181109
  4. XELJANZ [Suspect]
     Active Substance: TOFACITINIB CITRATE
     Indication: RHEUMATOID ARTHRITIS
     Route: 048
     Dates: start: 2018
  5. XELJANZ [Suspect]
     Active Substance: TOFACITINIB CITRATE
     Route: 048
     Dates: start: 201812, end: 201901

REACTIONS (12)
  - Weight decreased [Unknown]
  - Drug-induced liver injury [Unknown]
  - Nausea [Recovered/Resolved]
  - Epistaxis [Unknown]
  - Diarrhoea [Recovered/Resolved]
  - Nasal congestion [Unknown]
  - Dysgeusia [Unknown]
  - Malaise [Unknown]
  - Abdominal pain upper [Unknown]
  - Tinnitus [Unknown]
  - Influenza [Unknown]
  - Rheumatoid arthritis [Unknown]
